FAERS Safety Report 9624716 (Version 1)
Quarter: 2013Q4

REPORT INFORMATION
  Report Type: Spontaneous
  Country: US (occurrence: US)
  Receive Date: 20131015
  Receipt Date: 20131015
  Transmission Date: 20140711
  Serious: Yes (Other)
  Sender: FDA-Public Use
  Company Number: US-JNJFOC-20131001267

PATIENT
  Sex: Male

DRUGS (1)
  1. BENADRYL [Suspect]
     Indication: PRODUCT USED FOR UNKNOWN INDICATION
     Dosage: UP TO 200 PILLS IN ONE DAY
     Route: 048

REACTIONS (4)
  - Drug diversion [Unknown]
  - Hallucination, visual [Unknown]
  - Intentional overdose [Unknown]
  - Paraesthesia [Unknown]
